FAERS Safety Report 25605190 (Version 1)
Quarter: 2025Q3

REPORT INFORMATION
  Report Type: Spontaneous
  Country: US (occurrence: US)
  Receive Date: 20250725
  Receipt Date: 20250725
  Transmission Date: 20251020
  Serious: Yes (Death, Other)
  Sender: Kenvue
  Company Number: None

PATIENT
  Sex: Female

DRUGS (1)
  1. LOPERAMIDE HYDROCHLORIDE [Suspect]
     Active Substance: LOPERAMIDE HYDROCHLORIDE
     Indication: Back pain
     Route: 065

REACTIONS (10)
  - Drug abuse [Fatal]
  - Cardiac arrest [Fatal]
  - Toxicity to various agents [Fatal]
  - Ventricular fibrillation [Fatal]
  - Ventricular tachycardia [Fatal]
  - Metabolic acidosis [Fatal]
  - Troponin increased [Fatal]
  - Hypotension [Fatal]
  - Electrocardiogram QT prolonged [Fatal]
  - Brain injury [Fatal]
